FAERS Safety Report 6231236-5 (Version None)
Quarter: 2009Q2

REPORT INFORMATION
  Report Type: 
  Country: None (occurrence: None)
  Receive Date: 20090611
  Receipt Date: 20090604
  Transmission Date: 20091009
  Serious: Yes (Hospitalization)
  Sender: FDA-Public Use
  Company Number: WAES 0904USA03820

PATIENT
  Age: 66 Year
  Sex: Female

DRUGS (2)
  1. PEPCID [Suspect]
     Indication: GASTRITIS EROSIVE
     Dosage: 20 MG/DAILY PO
     Route: 048
     Dates: start: 20090330
  2. GRAN TROXSIN (TROXIPIDE) [Suspect]
     Indication: GASTRITIS EROSIVE
     Dosage: 1 GM/DAILY PO
     Route: 048
     Dates: start: 20090330

REACTIONS (1)
  - HERPES ZOSTER [None]
